FAERS Safety Report 16138305 (Version 4)
Quarter: 2019Q4

REPORT INFORMATION
  Report Type: Spontaneous
  Country: IT (occurrence: IT)
  Receive Date: 20190330
  Receipt Date: 20191221
  Transmission Date: 20200122
  Serious: Yes (Other)
  Sender: FDA-Public Use
  Company Number: IT-ACCORD-115841

PATIENT
  Age: 66 Year
  Sex: Female

DRUGS (7)
  1. DOXIFLURIDINE [Suspect]
     Active Substance: DOXIFLURIDINE
     Indication: METASTASES TO LIVER
     Route: 042
     Dates: start: 20180809
  2. VECTIBIX [Suspect]
     Active Substance: PANITUMUMAB
     Indication: METASTASES TO LIVER
     Dosage: LAST ADMINISTRATION: 29-NOV-2018,04-JAN-2019
     Route: 042
     Dates: start: 20180809
  3. VECTIBIX [Suspect]
     Active Substance: PANITUMUMAB
     Indication: METASTASES TO LIVER
     Dosage: 400 MG, CYCLIC
     Route: 042
     Dates: start: 20181129
  4. OXALIPLATIN. [Suspect]
     Active Substance: OXALIPLATIN
     Indication: METASTASES TO LIVER
     Dosage: LAST ADMINISTRATION: 29-NOV-2018,04-JAN-2019. ADDITION DOSE ADDED AS 220 MG
     Route: 042
     Dates: start: 20180809
  5. FLUOROURACIL. [Suspect]
     Active Substance: FLUOROURACIL
     Indication: METASTASES TO LIVER
     Route: 040
     Dates: start: 20180809
  6. LUCEN [Concomitant]
     Active Substance: ESOMEPRAZOLE
  7. TIROSINT [Concomitant]
     Active Substance: LEVOTHYROXINE SODIUM

REACTIONS (14)
  - Dysgeusia [Not Recovered/Not Resolved]
  - Dyspnoea [Recovering/Resolving]
  - Oedema [Recovering/Resolving]
  - Fatigue [Not Recovered/Not Resolved]
  - Palmar-plantar erythrodysaesthesia syndrome [Recovering/Resolving]
  - Eye irritation [Recovering/Resolving]
  - Off label use [Unknown]
  - Decreased appetite [Not Recovered/Not Resolved]
  - Asthenia [Not Recovered/Not Resolved]
  - Flushing [Recovering/Resolving]
  - Neuropathy peripheral [Recovering/Resolving]
  - Gait disturbance [Not Recovered/Not Resolved]
  - Skin fissures [Recovering/Resolving]
  - Dry skin [Recovering/Resolving]

NARRATIVE: CASE EVENT DATE: 20180809
